FAERS Safety Report 5109552-X (Version None)
Quarter: 2006Q3

REPORT INFORMATION
  Report Type: 
  Country: None (occurrence: None)
  Receive Date: 20060731
  Receipt Date: 20060404
  Transmission Date: 20061208
  Serious: No
  Sender: FDA-Public Use
  Company Number: 2006PV011516

PATIENT
  Age: 58 Year
  Sex: Male
  Weight: 162.8413 kg

DRUGS (3)
  1. BYETTA [Suspect]
     Indication: DIABETES MELLITUS NON-INSULIN-DEPENDENT
     Dosage: SEE IMAGE
     Route: 058
     Dates: start: 20050601
  2. BYETTA [Suspect]
  3. GLUCOPHAGE ^BRISTOL-MYERS SQIBB^ [Concomitant]

REACTIONS (6)
  - COLOUR BLINDNESS [None]
  - DECREASED APPETITE [None]
  - INJECTION SITE IRRITATION [None]
  - MACULAR DEGENERATION [None]
  - VISUAL DISTURBANCE [None]
  - WEIGHT DECREASED [None]
